FAERS Safety Report 9861166 (Version 1)
Quarter: 2014Q1

REPORT INFORMATION
  Report Type: Spontaneous
  Country: IL (occurrence: IL)
  Receive Date: 20140202
  Receipt Date: 20140202
  Transmission Date: 20141002
  Serious: No
  Sender: FDA-Public Use
  Company Number: IL-ALLERGAN-1303966US

PATIENT
  Sex: Female

DRUGS (3)
  1. BOTOX [Suspect]
     Indication: SKIN WRINKLING
     Dosage: UNK UNK, SINGLE
     Dates: start: 20130314, end: 20130314
  2. BOTOX [Suspect]
     Indication: SKIN WRINKLING
  3. BOTOX [Suspect]
     Indication: SKIN WRINKLING

REACTIONS (2)
  - Wrong technique in drug usage process [Unknown]
  - Injection site pain [Unknown]
